FAERS Safety Report 13613969 (Version 2)
Quarter: 2018Q2

REPORT INFORMATION
  Report Type: Spontaneous
  Country: CN (occurrence: CN)
  Receive Date: 20170606
  Receipt Date: 20180607
  Transmission Date: 20180711
  Serious: Yes (Other)
  Sender: FDA-Public Use
  Company Number: CN-SUN PHARMACEUTICAL INDUSTRIES LTD-2015R1-109442

PATIENT
  Sex: Male

DRUGS (2)
  1. NIACIN. [Suspect]
     Active Substance: NIACIN
     Indication: NICOTINIC ACID DEFICIENCY
     Dosage: 500 MG, QD
     Route: 065
  2. NIACIN. [Suspect]
     Active Substance: NIACIN
     Dosage: 200 MG, QD
     Route: 065

REACTIONS (1)
  - Condition aggravated [Recovering/Resolving]
